FAERS Safety Report 8485385-1 (Version None)
Quarter: 2012Q3

REPORT INFORMATION
  Report Type: 
  Country: None (occurrence: None)
  Receive Date: 20120703
  Receipt Date: 20120621
  Transmission Date: 20120928
  Serious: Yes (Hospitalization, Other)
  Sender: FDA-Public Use
  Company Number: US-VERTEX PHARMACEUTICALS INC.-AE-2012-009424

PATIENT
  Sex: Female

DRUGS (4)
  1. RIBAVIRIN [Concomitant]
     Indication: HEPATITIS C
     Dates: start: 20111221, end: 20120310
  2. INCIVEK [Suspect]
     Indication: HEPATITIS C
     Route: 048
     Dates: start: 20111221, end: 20120314
  3. PEGASYS [Concomitant]
     Indication: HEPATITIS C
     Dates: start: 20111221, end: 20120406
  4. RIBAVIRIN [Concomitant]
     Dates: start: 20120310, end: 20120406

REACTIONS (11)
  - WHITE BLOOD CELL COUNT DECREASED [None]
  - ASTHENIA [None]
  - ANAEMIA [None]
  - LUNG INFECTION [None]
  - COMA [None]
  - PANCREATIC MASS [None]
  - AMNESIA [None]
  - PULMONARY OEDEMA [None]
  - CONFUSIONAL STATE [None]
  - WEIGHT DECREASED [None]
  - MYALGIA [None]
